FAERS Safety Report 20157495 (Version 1)
Quarter: 2021Q4

REPORT INFORMATION
  Report Type: Spontaneous
  Country: CA (occurrence: CA)
  Receive Date: 20211207
  Receipt Date: 20211207
  Transmission Date: 20220303
  Serious: Yes (Hospitalization)
  Sender: FDA-Public Use
  Company Number: CA-BAUSCH-BL-2021-040317

PATIENT
  Age: 13 Year
  Sex: Female

DRUGS (4)
  1. BUDESONIDE [Suspect]
     Active Substance: BUDESONIDE
     Indication: Colitis ulcerative
     Route: 048
  2. PREDNISONE [Suspect]
     Active Substance: PREDNISONE
     Indication: Colitis ulcerative
     Route: 065
  3. XELJANZ [Suspect]
     Active Substance: TOFACITINIB CITRATE
     Indication: Colitis ulcerative
     Dosage: 10 MG, 2 TIMES DAILY
     Route: 048
  4. USTEKINUMAB [Suspect]
     Active Substance: USTEKINUMAB
     Indication: Colitis ulcerative
     Route: 065
     Dates: start: 202105

REACTIONS (6)
  - Bell^s palsy [Unknown]
  - Colitis ulcerative [Unknown]
  - Therapeutic product effect incomplete [Unknown]
  - Malaise [Unknown]
  - C-reactive protein increased [Unknown]
  - Off label use [Unknown]
